FAERS Safety Report 13344230 (Version 2)
Quarter: 2017Q2

REPORT INFORMATION
  Report Type: Spontaneous
  Country: US (occurrence: US)
  Receive Date: 20170316
  Receipt Date: 20170411
  Transmission Date: 20170830
  Serious: No
  Sender: FDA-Public Use
  Company Number: US-009507513-1703USA006724

PATIENT
  Sex: Female

DRUGS (8)
  1. ATIVAN [Concomitant]
     Active Substance: LORAZEPAM
  2. COLFORSIN. [Concomitant]
     Active Substance: COLFORSIN
  3. INTRON A [Suspect]
     Active Substance: INTERFERON ALFA-2B
     Indication: MYCOSIS FUNGOIDES
  4. ELAVIL (ALLOPURINOL) [Concomitant]
     Active Substance: ALLOPURINOL
  5. VITAMINS (UNSPECIFIED) [Concomitant]
     Active Substance: VITAMINS
  6. TYLENOL [Concomitant]
     Active Substance: ACETAMINOPHEN
  7. INTRON A [Suspect]
     Active Substance: INTERFERON ALFA-2B
     Indication: CYSTIC FIBROSIS
     Dosage: STRENGTH 18 MU, 0.2 ML, THREE TIMES PER WEEK
     Route: 058
     Dates: start: 20140315
  8. BIOTIN [Concomitant]
     Active Substance: BIOTIN

REACTIONS (1)
  - Fatigue [Not Recovered/Not Resolved]
